FAERS Safety Report 4876310-0 (Version None)
Quarter: 2006Q1

REPORT INFORMATION
  Report Type: 
  Country: None (occurrence: None)
  Receive Date: 20060110
  Receipt Date: 20051207
  Transmission Date: 20060701
  Serious: Yes (Life-Threatening, Other)
  Sender: FDA-Public Use
  Company Number: DE-BOEHRINGER INGELHEIM PHARMACEUTICALS, INC.-2005-DE-05396DE

PATIENT
  Age: 82 Year
  Sex: Male

DRUGS (1)
  1. MOBIC [Suspect]
     Route: 048

REACTIONS (11)
  - ANOREXIA [None]
  - CARDIOVASCULAR DISORDER [None]
  - DIZZINESS [None]
  - DYSGEUSIA [None]
  - GENERALISED OEDEMA [None]
  - HYPERTENSION [None]
  - MALAISE [None]
  - NAUSEA [None]
  - PYREXIA [None]
  - RENAL DISORDER [None]
  - RENAL FUNCTION TEST ABNORMAL [None]
